FAERS Safety Report 26215401 (Version 1)
Quarter: 2025Q4

REPORT INFORMATION
  Report Type: Spontaneous
  Country: EG (occurrence: EG)
  Receive Date: 20251231
  Receipt Date: 20251231
  Transmission Date: 20260118
  Serious: Yes (Life-Threatening, Hospitalization, Other)
  Sender: HIKMA
  Company Number: EG-HIKMA PHARMACEUTICALS-EG-H14001-25-13800

PATIENT
  Age: 42 Year
  Sex: Male
  Weight: 55 kg

DRUGS (6)
  1. DOCETAXEL [Suspect]
     Active Substance: DOCETAXEL
     Indication: Gastric cancer
     Dosage: 75 MILLIGRAM, OVER 90 MINUTES
  2. LEUCOVORIN CALCIUM [Suspect]
     Active Substance: LEUCOVORIN CALCIUM
     Indication: Gastric cancer
     Dosage: 320 MILLIGRAM, OVER TWO HOURS FOR TWO CONSECUTIVE DAYS
  3. OXALIPLATIN [Suspect]
     Active Substance: OXALIPLATIN
     Indication: Gastric cancer
     Dosage: 127.5 MILLIGRAM OVER TWO HOURS
  4. FLUOROURACIL [Suspect]
     Active Substance: FLUOROURACIL
     Indication: Gastric cancer
     Dosage: 3900 MILLIGRAM, OVER 24 HOURS
  5. DEXAMETHASONE [Concomitant]
     Active Substance: DEXAMETHASONE
     Indication: Chemotherapy side effect prophylaxis
     Dosage: UNK, OVER 30 MINUTES
  6. GRANITRYL [Concomitant]
     Indication: Chemotherapy side effect prophylaxis
     Dosage: UNK, OVER 30 MINUTES

REACTIONS (19)
  - Infarction [Recovered/Resolved]
  - Transient ischaemic attack [Recovering/Resolving]
  - Febrile neutropenia [Recovered/Resolved]
  - Leukopenia [Recovered/Resolved]
  - General physical health deterioration [Recovered/Resolved]
  - Fatigue [Recovering/Resolving]
  - Hypotension [Recovered/Resolved]
  - Decreased appetite [Recovered/Resolved]
  - Confusional state [Recovered/Resolved]
  - Pyrexia [Recovered/Resolved]
  - Chills [Recovered/Resolved]
  - Diarrhoea [Recovered/Resolved]
  - Hyponatraemia [Recovering/Resolving]
  - Hypokalaemia [Recovered/Resolved]
  - Anaemia [Recovering/Resolving]
  - Hypophosphataemia [Recovered/Resolved]
  - Hypocalcaemia [Recovering/Resolving]
  - Hypoalbuminaemia [Not Recovered/Not Resolved]
  - Weight decreased [Recovered/Resolved]

NARRATIVE: CASE EVENT DATE: 20250917
